FAERS Safety Report 8198253-X (Version None)
Quarter: 2012Q1

REPORT INFORMATION
  Report Type: 
  Country: None (occurrence: None)
  Receive Date: 20120309
  Receipt Date: 20120229
  Transmission Date: 20120608
  Serious: Yes (Hospitalization, Disabling, Other)
  Sender: FDA-Public Use
  Company Number: US-MERCK-1103USA03955

PATIENT
  Age: 52 Year
  Sex: Female
  Weight: 70 kg

DRUGS (5)
  1. FOSAMAX PLUS D [Suspect]
     Indication: OSTEOPENIA
     Route: 048
     Dates: start: 20060215
  2. FOSAMAX [Suspect]
     Route: 048
     Dates: start: 20010101, end: 20051011
  3. ZOCOR [Suspect]
     Route: 048
  4. FOSAMAX [Suspect]
     Indication: OSTEOPENIA
     Route: 048
     Dates: start: 19981019, end: 20010101
  5. FOSAMAX PLUS D [Suspect]
     Route: 048
     Dates: start: 20080620, end: 20091103

REACTIONS (62)
  - BARTHOLIN'S CYST [None]
  - VERTEBRAL FORAMINAL STENOSIS [None]
  - UMBILICAL HERNIA [None]
  - LARYNGITIS [None]
  - LABILE BLOOD PRESSURE [None]
  - FALL [None]
  - BACK PAIN [None]
  - INTERVERTEBRAL DISC SPACE NARROWING [None]
  - GLAUCOMA [None]
  - TOOTH FRACTURE [None]
  - HYPOTENSION [None]
  - BLOOD CHOLESTEROL INCREASED [None]
  - ARTHRALGIA [None]
  - JOINT INJURY [None]
  - CYSTOID MACULAR OEDEMA [None]
  - POST-TRAUMATIC STRESS DISORDER [None]
  - PAIN IN EXTREMITY [None]
  - NEURALGIA [None]
  - SCOLIOSIS [None]
  - MYOPIA [None]
  - BLOOD GLUCOSE INCREASED [None]
  - GASTROOESOPHAGEAL REFLUX DISEASE [None]
  - UVEITIS [None]
  - RASH [None]
  - INTERVERTEBRAL DISC DEGENERATION [None]
  - BALANCE DISORDER [None]
  - MUSCULAR WEAKNESS [None]
  - ACTIVITIES OF DAILY LIVING IMPAIRED [None]
  - DRUG HYPERSENSITIVITY [None]
  - FEMUR FRACTURE [None]
  - OVERDOSE [None]
  - OVERWEIGHT [None]
  - VITAMIN D DEFICIENCY [None]
  - VISUAL ACUITY REDUCED [None]
  - RHINITIS [None]
  - LOW TURNOVER OSTEOPATHY [None]
  - STRESS FRACTURE [None]
  - BONE FRAGMENTATION [None]
  - MACULAR HOLE [None]
  - LUMBAR VERTEBRAL FRACTURE [None]
  - PALPITATIONS [None]
  - NERVE COMPRESSION [None]
  - LUMBAR RADICULOPATHY [None]
  - FRACTURE DISPLACEMENT [None]
  - BUNION [None]
  - LYMPH GLAND INFECTION [None]
  - ANISOMETROPIA [None]
  - HYPERTENSION [None]
  - HYPERSENSITIVITY [None]
  - SYNOVIAL CYST [None]
  - HYPOAESTHESIA [None]
  - NECK PAIN [None]
  - MENISCUS LESION [None]
  - SYNCOPE [None]
  - MYALGIA [None]
  - SPONDYLOLISTHESIS [None]
  - ARTHRITIS [None]
  - ROAD TRAFFIC ACCIDENT [None]
  - DYSLIPIDAEMIA [None]
  - GAIT DISTURBANCE [None]
  - DEFORMITY [None]
  - OSTEOARTHRITIS [None]
